FAERS Safety Report 12857533 (Version 1)
Quarter: 2016Q4

REPORT INFORMATION
  Report Type: Report from Study
  Country: CA (occurrence: CA)
  Receive Date: 20161018
  Receipt Date: 20161018
  Transmission Date: 20170207
  Serious: Yes (Other)
  Sender: FDA-Public Use
  Company Number: CA-JNJFOC-20161011713

PATIENT
  Age: 17 Year
  Sex: Female

DRUGS (1)
  1. REMICADE [Suspect]
     Active Substance: INFLIXIMAB
     Indication: ANKYLOSING SPONDYLITIS
     Route: 042
     Dates: start: 20150817

REACTIONS (4)
  - Lower respiratory tract infection [Unknown]
  - Off label use [Unknown]
  - Oral candidiasis [Unknown]
  - Product use issue [Unknown]

NARRATIVE: CASE EVENT DATE: 20150817
